FAERS Safety Report 16048740 (Version 2)
Quarter: 2019Q2

REPORT INFORMATION
  Report Type: Spontaneous
  Country: US (occurrence: US)
  Receive Date: 20190307
  Receipt Date: 20190509
  Transmission Date: 20190711
  Serious: No
  Sender: FDA-Public Use
  Company Number: US-SA-2019SA063231

PATIENT

DRUGS (1)
  1. NASACORT ALLERGY 24HR [Suspect]
     Active Substance: TRIAMCINOLONE ACETONIDE
     Indication: HYPERSENSITIVITY
     Dosage: TWO SPRAYS PER NOSTRIL PER DAY
     Route: 045

REACTIONS (4)
  - Condition aggravated [Unknown]
  - Product dispensing error [Unknown]
  - Product quality issue [Unknown]
  - Drug ineffective [Unknown]
